FAERS Safety Report 10314743 (Version 2)
Quarter: 2014Q3

REPORT INFORMATION
  Report Type: Spontaneous
  Country: US (occurrence: None)
  Receive Date: 20140718
  Receipt Date: 20140919
  Transmission Date: 20150326
  Serious: Yes (Other)
  Sender: FDA-Public Use
  Company Number: ADR-2014-01232

PATIENT
  Age: 42 Year
  Sex: Male

DRUGS (2)
  1. BACLOFEN ORAL [Suspect]
     Active Substance: BACLOFEN
     Dosage: 20 MG PO TID PRN
     Route: 048
  2. COMPOUNDED BACLOFEN INTRATHECAL 2000MCG/ML [Suspect]
     Active Substance: BACLOFEN
     Indication: MUSCLE SPASTICITY

REACTIONS (10)
  - Thermal burn [None]
  - Activities of daily living impaired [None]
  - Therapy cessation [None]
  - Tremor [None]
  - Condition aggravated [None]
  - Muscle spasticity [None]
  - Wound [None]
  - Withdrawal syndrome [None]
  - Drug dose omission [None]
  - Musculoskeletal stiffness [None]
